FAERS Safety Report 6234524-1 (Version None)
Quarter: 2009Q2

REPORT INFORMATION
  Report Type: 
  Country: None (occurrence: None)
  Receive Date: 20090618
  Receipt Date: 20090212
  Transmission Date: 20091009
  Serious: No
  Sender: FDA-Public Use
  Company Number: US-BRISTOL-MYERS SQUIBB COMPANY-14521736

PATIENT
  Age: 72 Year
  Sex: Female

DRUGS (2)
  1. CARBIDOPA + LEVODOPA [Suspect]
     Indication: PARKINSON'S DISEASE
     Dosage: 1DF-25/100MG
     Route: 048
  2. PRAMIPEXOLE DIHYDROCHLORIDE [Concomitant]

REACTIONS (3)
  - CHOREA [None]
  - DRUG EFFECT DECREASED [None]
  - DRUG INEFFECTIVE [None]
